FAERS Safety Report 13328744 (Version 1)
Quarter: 2017Q1

REPORT INFORMATION
  Report Type: Spontaneous
  Country: US (occurrence: US)
  Receive Date: 20170311
  Receipt Date: 20170311
  Transmission Date: 20170428
  Serious: Yes (Other)
  Sender: FDA-Public Use
  Company Number: None

PATIENT
  Age: 35 Year
  Sex: Female

DRUGS (2)
  1. OCELLA [Concomitant]
     Active Substance: DROSPIRENONE\ETHINYL ESTRADIOL
  2. ICY HOT [Suspect]
     Active Substance: MENTHOL\METHYL SALICYLATE
     Indication: MUSCLE STRAIN
     Dosage: QUANTITY:1 PATCH(ES);?
     Route: 062
     Dates: start: 20170305, end: 20170309

REACTIONS (2)
  - Rash papular [None]
  - Blister [None]

NARRATIVE: CASE EVENT DATE: 20170309
